FAERS Safety Report 25612580 (Version 2)
Quarter: 2025Q3

REPORT INFORMATION
  Report Type: Spontaneous
  Country: JP (occurrence: JP)
  Receive Date: 20250728
  Receipt Date: 20250811
  Transmission Date: 20251021
  Serious: No
  Sender: PFIZER
  Company Number: JP-PFIZER INC-PV202500071035

PATIENT
  Age: 14 Year
  Sex: Male
  Weight: 33.4 kg

DRUGS (3)
  1. NGENLA [Suspect]
     Active Substance: SOMATROGON-GHLA
     Indication: Growth hormone deficiency
     Dosage: 20 MG, WEEKLY
     Route: 058
     Dates: start: 20230915
  2. FEXOFENADINE [Concomitant]
     Active Substance: FEXOFENADINE HYDROCHLORIDE
     Dosage: 1.2 G, 2X/DAY
  3. PRANLUKAST [Concomitant]
     Active Substance: PRANLUKAST
     Dosage: 120 MG, 2X/DAY

REACTIONS (2)
  - Injection site pain [Recovering/Resolving]
  - Off label use [Unknown]

NARRATIVE: CASE EVENT DATE: 20230101
